FAERS Safety Report 13693359 (Version 1)
Quarter: 2017Q2

REPORT INFORMATION
  Report Type: Spontaneous
  Country: US (occurrence: US)
  Receive Date: 20170627
  Receipt Date: 20170627
  Transmission Date: 20170830
  Serious: No
  Sender: FDA-Public Use
  Company Number: US-ASTRAZENECA-2017SE65933

PATIENT
  Age: 61 Year
  Sex: Female
  Weight: 70.3 kg

DRUGS (8)
  1. ALBUTEROL RESCUE INHALER [Concomitant]
     Indication: ASTHMA
     Dosage: UNKNOWN
     Route: 055
  2. PULMICORT FLEXHALER [Suspect]
     Active Substance: BUDESONIDE
     Indication: ASTHMA
     Dosage: TWO PUFFS ONCE DAILY OR THREE PUFFS TWICE DAILY
     Route: 055
  3. FLO-VENT [Concomitant]
  4. GABAPENTIN. [Concomitant]
     Active Substance: GABAPENTIN
     Indication: RESTLESS LEGS SYNDROME
     Route: 048
     Dates: start: 2010
  5. PULMICORT FLEXHALER [Suspect]
     Active Substance: BUDESONIDE
     Indication: ASTHMA
     Dosage: 90 MCG, TWO PUFS TWICE DAILY
     Route: 055
     Dates: start: 2006
  6. PULMICORT FLEXHALER [Suspect]
     Active Substance: BUDESONIDE
     Indication: ASTHMA
     Route: 055
  7. ESTROGEN [Concomitant]
     Active Substance: ESTROGENS
     Indication: MENOPAUSE
     Dosage: UNKNOWN
     Route: 065
  8. PROGESTERONE. [Concomitant]
     Active Substance: PROGESTERONE
     Indication: MENOPAUSE
     Dosage: UNKNOWN
     Route: 065

REACTIONS (16)
  - Dysphonia [Unknown]
  - Off label use [Unknown]
  - Dyspnoea [Unknown]
  - Intentional product misuse [Unknown]
  - Bronchitis [Unknown]
  - Upper respiratory tract infection [Unknown]
  - Sinusitis [Unknown]
  - Cough [Unknown]
  - Restless legs syndrome [Unknown]
  - Pneumonia [Unknown]
  - Intentional product use issue [Unknown]
  - Plantar fasciitis [Unknown]
  - Intervertebral disc protrusion [Unknown]
  - Rotator cuff syndrome [Unknown]
  - Pharyngeal oedema [Not Recovered/Not Resolved]
  - Oropharyngeal pain [Unknown]

NARRATIVE: CASE EVENT DATE: 2010
